FAERS Safety Report 4925444-0 (Version None)
Quarter: 2006Q1

REPORT INFORMATION
  Report Type: 
  Country: None (occurrence: None)
  Receive Date: 20060228
  Receipt Date: 20050222
  Transmission Date: 20060701
  Serious: No
  Sender: FDA-Public Use
  Company Number: US-GLAXOSMITHKLINE-A0546733A

PATIENT
  Sex: Female

DRUGS (5)
  1. LAMICTAL [Suspect]
     Indication: BIPOLAR DISORDER
     Dosage: 100MG TWICE PER DAY
     Route: 048
     Dates: start: 20031101
  2. SYNTHROID [Concomitant]
  3. ESKALITH [Concomitant]
  4. ABILIFY [Concomitant]
  5. MULTIVITAMIN [Concomitant]

REACTIONS (1)
  - DYSGEUSIA [None]
